FAERS Safety Report 8247610-1 (Version None)
Quarter: 2012Q1

REPORT INFORMATION
  Report Type: 
  Country: None (occurrence: None)
  Receive Date: 20120330
  Receipt Date: 20120322
  Transmission Date: 20120608
  Serious: Yes (Hospitalization)
  Sender: FDA-Public Use
  Company Number: US-BAYER-2011-082087

PATIENT
  Age: 22 Year
  Sex: Female
  Weight: 114 kg

DRUGS (2)
  1. YASMIN [Suspect]
     Dosage: UNK
     Dates: start: 20060201, end: 20061101
  2. YASMIN [Suspect]

REACTIONS (5)
  - INJURY [None]
  - GALLBLADDER DISORDER [None]
  - BILE DUCT STONE [None]
  - PAIN [None]
  - CHOLELITHIASIS [None]
